FAERS Safety Report 17434396 (Version 4)
Quarter: 2021Q4

REPORT INFORMATION
  Report Type: Spontaneous
  Country: US (occurrence: US)
  Receive Date: 20200219
  Receipt Date: 20211213
  Transmission Date: 20220303
  Serious: Yes (Other)
  Sender: FDA-Public Use
  Company Number: US-PFIZER INC-2016053359

PATIENT
  Age: 62 Year
  Sex: Female
  Weight: 126.1 kg

DRUGS (23)
  1. LYRICA [Suspect]
     Active Substance: PREGABALIN
     Indication: Diabetic neuropathy
     Dosage: 100 MG, 3X/DAY (TAKE 1 CAPSULE (100 MG) BY ORAL ROUTE 3 TIMES PER DAY FOR 30 DAYS)
     Route: 048
  2. LYRICA [Suspect]
     Active Substance: PREGABALIN
     Dosage: 150 MG, 3X/DAY
     Route: 048
  3. ASPIRIN [Concomitant]
     Active Substance: ASPIRIN
     Dosage: 81 MG, DAILY
     Route: 048
     Dates: start: 20141216
  4. ATIVAN [Concomitant]
     Active Substance: LORAZEPAM
     Indication: Anxiety
     Dosage: 0.5 MG, AS NEEDED
     Route: 048
     Dates: start: 20150825
  5. ATIVAN [Concomitant]
     Active Substance: LORAZEPAM
     Dosage: 0.5 UNK, UNK (TAKE 1 TABLET BY ORAL ROUTE BID (TWO TIMES A DAY) ANXIETY OR 30 DAYS)
     Route: 048
     Dates: start: 20160330
  6. DOCUSATE SODIUM [Concomitant]
     Active Substance: DOCUSATE SODIUM
     Dosage: 100 MG, 2X/DAY
     Route: 048
     Dates: start: 20141216
  7. ACETAMINOPHEN\HYDROCODONE [Concomitant]
     Active Substance: ACETAMINOPHEN\HYDROCODONE
     Indication: Pain
     Dosage: 1 DF, AS NEEDED [5-325MG]
     Route: 048
     Dates: start: 20160112
  8. LASIX [Concomitant]
     Active Substance: FUROSEMIDE
     Dosage: 20 MG, DAILY (TAKE 1 TABLET BY MOUTH ONCE DAILY FOR 30 DAYS)
     Dates: start: 20151211
  9. LEVOTHYROXINE [Concomitant]
     Active Substance: LEVOTHYROXINE
     Dosage: 112 UG, DAILY (TAKE 1 TABLET BY MOUTH EVERY DAY)
     Route: 048
     Dates: start: 20150923
  10. LIDODERM [Concomitant]
     Active Substance: LIDOCAINE
     Dosage: UNK UNK, DAILY [5 %(700 MG/PATCH)]
     Route: 062
     Dates: start: 20151029
  11. LIPITOR [Concomitant]
     Active Substance: ATORVASTATIN CALCIUM
     Dosage: 80 MG, DAILY
     Route: 048
     Dates: start: 20150921
  12. LISINOPRIL [Concomitant]
     Active Substance: LISINOPRIL
     Dosage: UNK UNK, 2X/DAY (TAKE 0.5 TABLET BY ORAL ROUTE 2 TIMES A DAY)
     Route: 048
     Dates: start: 20141216
  13. MECLIZINE [Concomitant]
     Active Substance: MECLIZINE HYDROCHLORIDE
     Dosage: 12.5 MG, 2X/DAY
     Route: 048
     Dates: start: 20151026
  14. METFORMIN [Concomitant]
     Active Substance: METFORMIN HYDROCHLORIDE
     Dosage: 500 MG, 2X/DAY (TAKE 1 TABLET BY MOUTH TWICE A DAY)
     Route: 048
     Dates: start: 20151109
  15. METOPROLOL SUCCINATE [Concomitant]
     Active Substance: METOPROLOL SUCCINATE
     Dosage: 50 MG, 2X/DAY (TAKE 2 TABLETS BY ORAL ROUTE 2 TIMES A DAY)
     Route: 048
  16. NITROGLYCERIN [Concomitant]
     Active Substance: NITROGLYCERIN
     Dosage: 0.4 MG, UNK (PLACE 1 TABLET (0.4 MG) BY SUBLINGUAL ROUTE 5-10 MINUTES PRIOR TO ACTIVITIES WHICH MIG)
     Route: 060
  17. OMEPRAZOLE [Concomitant]
     Active Substance: OMEPRAZOLE
     Dosage: 20 MG, 2X/DAY (TAKE 1 CAPSULE BY ORAL ROUTE 2 TIMES A DAY FOR 90 DAYS)
     Route: 048
     Dates: start: 20141007
  18. OXYBUTYNIN CHLORIDE [Concomitant]
     Active Substance: OXYBUTYNIN CHLORIDE
     Dosage: 5 MG, DAILY (TAKE 1 TABLET BY ORAL ROUTE DAILY)
     Route: 048
  19. PLAVIX [Concomitant]
     Active Substance: CLOPIDOGREL BISULFATE
     Dosage: 75 MG, DAILY
     Route: 048
  20. TRIMETHOPRIM [Concomitant]
     Active Substance: TRIMETHOPRIM
     Dosage: 100 MG, DAILY
     Route: 048
     Dates: start: 20140317
  21. VITAMIN B12 [Concomitant]
     Active Substance: CYANOCOBALAMIN
     Dosage: 1 DF, DAILY
     Route: 048
  22. ZOFRAN [Concomitant]
     Active Substance: ONDANSETRON HYDROCHLORIDE
     Indication: Nausea
     Dosage: 4 MG, AS NEEDED (TAKE 1 TABLET BY MOUTH EVERY 8 HOURS AS NEEDED FOR NAUSEA  OR VOMITING)
     Dates: start: 20150728
  23. ZOFRAN [Concomitant]
     Active Substance: ONDANSETRON HYDROCHLORIDE
     Indication: Vomiting

REACTIONS (5)
  - Ankle fracture [Unknown]
  - Fall [Unknown]
  - Haemorrhage [Unknown]
  - Skin laceration [Unknown]
  - Off label use [Unknown]

NARRATIVE: CASE EVENT DATE: 20200101
